FAERS Safety Report 20549121 (Version 6)
Quarter: 2022Q3

REPORT INFORMATION
  Report Type: Spontaneous
  Country: US (occurrence: None)
  Receive Date: 20220303
  Receipt Date: 20220817
  Transmission Date: 20221026
  Serious: Yes (Other)
  Sender: FDA-Public Use
  Company Number: US-ROCHE-3035671

PATIENT
  Age: 50 Year
  Sex: Male
  Weight: 88.530 kg

DRUGS (18)
  1. XOLAIR [Suspect]
     Active Substance: OMALIZUMAB
     Indication: Idiopathic angioedema
     Route: 058
     Dates: start: 202202, end: 202207
  2. XOLAIR [Suspect]
     Active Substance: OMALIZUMAB
  3. XOLAIR [Suspect]
     Active Substance: OMALIZUMAB
     Indication: Urticaria
     Dosage: ONGOING NO: TWO SHOTS MONTHLY
     Route: 058
     Dates: end: 20220706
  4. XOLAIR [Suspect]
     Active Substance: OMALIZUMAB
  5. TRIAM [TRIAMCINOLONE ACETONIDE] [Concomitant]
     Indication: Eczema
     Route: 061
     Dates: start: 202112
  6. HYDROXYZINE [Concomitant]
     Active Substance: HYDROXYZINE HYDROCHLORIDE
     Indication: Angioedema
     Dosage: 25 MG IN MORNING AND AT NIGHT
     Route: 048
     Dates: start: 202202, end: 202205
  7. HYDROXYZINE [Concomitant]
     Active Substance: HYDROXYZINE HYDROCHLORIDE
     Dosage: 25 MG AT NIGHT
     Route: 048
     Dates: start: 202207
  8. CRESTOR [Concomitant]
     Active Substance: ROSUVASTATIN CALCIUM
     Indication: Blood cholesterol increased
     Route: 048
     Dates: start: 202204
  9. LEVOTHYROXINE [Concomitant]
     Active Substance: LEVOTHYROXINE
     Indication: Hypothyroidism
     Route: 048
  10. PREDNISONE [Concomitant]
     Active Substance: PREDNISONE
     Indication: Angioedema
     Route: 048
     Dates: start: 2015, end: 2022
  11. PREDNISONE [Concomitant]
     Active Substance: PREDNISONE
     Dosage: WILL TAKE 2-3 25 MG, OR 60-80 MG TABLETS FOR SEVERE ANGIOEDEMA
     Route: 048
     Dates: start: 2022
  12. EPIPEN [Concomitant]
     Active Substance: EPINEPHRINE
     Indication: Angioedema
     Dosage: PROBABLY INTRAMUSCULAR, BECAUSE HE PUTS IN HIS THIGH
     Route: 058
  13. TESTOSTERONE [Concomitant]
     Active Substance: TESTOSTERONE
     Indication: Blood testosterone decreased
  14. ZYRTEC [Concomitant]
     Active Substance: CETIRIZINE HYDROCHLORIDE
     Indication: Angioedema
     Route: 048
     Dates: start: 2015
  15. PEPCID [Concomitant]
     Active Substance: FAMOTIDINE
     Indication: Angioedema
     Dosage: MORNING AND NIGHT
     Route: 048
  16. PEPCID [Concomitant]
     Active Substance: FAMOTIDINE
     Dosage: MORNING AND NIGHT
     Route: 048
     Dates: start: 202204
  17. BENADRYL [Concomitant]
     Active Substance: DIPHENHYDRAMINE HYDROCHLORIDE
     Indication: Angioedema
     Dosage: 2 IN THE MORNING AND EVENING
     Route: 048
  18. ZANTAC [Concomitant]
     Active Substance: RANITIDINE HYDROCHLORIDE
     Indication: Angioedema

REACTIONS (7)
  - Loss of consciousness [Not Recovered/Not Resolved]
  - Aortic aneurysm [Not Recovered/Not Resolved]
  - Heart valve incompetence [Not Recovered/Not Resolved]
  - Throat tightness [Recovered/Resolved]
  - Dysphagia [Recovered/Resolved]
  - Off label use [Unknown]
  - Dizziness [Recovered/Resolved]

NARRATIVE: CASE EVENT DATE: 20220201
